FAERS Safety Report 22272077 (Version 1)
Quarter: 2023Q2

REPORT INFORMATION
  Report Type: Spontaneous
  Country: CA (occurrence: CA)
  Receive Date: 20230502
  Receipt Date: 20230502
  Transmission Date: 20230722
  Serious: Yes (Other)
  Sender: FDA-Public Use
  Company Number: CA-AUROBINDO-AUR-APL-2023-033710

PATIENT
  Age: 38 Year
  Sex: Male

DRUGS (3)
  1. TERBINAFINE [Suspect]
     Active Substance: TERBINAFINE
     Indication: Trichophytosis
     Dosage: 250 MILLIGRAM, 1 EVERY 4 WEEKS
     Route: 065
  2. KETOCONAZOLE [Concomitant]
     Active Substance: KETOCONAZOLE
     Indication: Trichophytosis
     Dosage: UNK, 1 EVERY 4 WEEKS
     Route: 065
  3. BETAMETHASONE [Concomitant]
     Active Substance: BETAMETHASONE
     Indication: Trichophytosis
     Dosage: 0.1 PERCENT
     Route: 065

REACTIONS (1)
  - Drug resistance [Unknown]
